FAERS Safety Report 4824007-5 (Version None)
Quarter: 2005Q4

REPORT INFORMATION
  Report Type: 
  Country: None (occurrence: None)
  Receive Date: 20051107
  Receipt Date: 20051025
  Transmission Date: 20060501
  Serious: Yes (Hospitalization)
  Sender: FDA-Public Use
  Company Number: 2005150047

PATIENT

DRUGS (2)
  1. LYRICA [Suspect]
     Indication: PAIN
  2. ALL OTHER THERAPEUTIC PRODUCTS (ALL OTHER THERAPEUTIC PRODUCTS) [Concomitant]

REACTIONS (4)
  - DIZZINESS [None]
  - EUPHORIC MOOD [None]
  - HYPERHIDROSIS [None]
  - INADEQUATE ANALGESIA [None]
